FAERS Safety Report 5483415-2 (Version None)
Quarter: 2007Q4

REPORT INFORMATION
  Report Type: 
  Country: None (occurrence: None)
  Receive Date: 20071012
  Receipt Date: 20071005
  Transmission Date: 20080405
  Serious: Yes (Other)
  Sender: FDA-Public Use
  Company Number: US-BAYER-200712761BCC

PATIENT
  Sex: Male

DRUGS (2)
  1. ASPIRIN [Suspect]
     Indication: COAGULOPATHY
     Route: 048
     Dates: end: 19801104
  2. ASPIRIN [Suspect]
     Route: 048

REACTIONS (4)
  - CORONARY ARTERY BYPASS [None]
  - ELECTROCARDIOGRAM ABNORMAL [None]
  - ERUCTATION [None]
  - EXERCISE ELECTROCARDIOGRAM ABNORMAL [None]
